FAERS Safety Report 9065696 (Version 2)
Quarter: 2013Q1

REPORT INFORMATION
  Report Type: Spontaneous
  Country: JP (occurrence: JP)
  Receive Date: 20130214
  Receipt Date: 20130328
  Transmission Date: 20140127
  Serious: Yes (Other)
  Sender: FDA-Public Use
  Company Number: JP-JNJFOC-20130202582

PATIENT
  Age: 78 Year
  Sex: Female

DRUGS (9)
  1. REMINYL [Suspect]
     Indication: PRODUCT USED FOR UNKNOWN INDICATION
     Route: 048
  2. BONALON [Suspect]
     Indication: PRODUCT USED FOR UNKNOWN INDICATION
     Route: 048
  3. OMEPRAZOLE [Concomitant]
     Route: 048
  4. LENDORMIN [Concomitant]
     Route: 048
  5. ALDACTONE A [Concomitant]
     Route: 048
  6. DIART [Concomitant]
     Route: 048
  7. EPL [Concomitant]
     Route: 048
  8. CLARITH [Concomitant]
     Route: 048
  9. CALONAL [Concomitant]
     Route: 048

REACTIONS (3)
  - Anaemia [Recovered/Resolved]
  - Gastric antral vascular ectasia [Unknown]
  - Hepatitis C [Unknown]
